FAERS Safety Report 8448075-7 (Version None)
Quarter: 2012Q2

REPORT INFORMATION
  Report Type: 
  Country: None (occurrence: None)
  Receive Date: 20120619
  Receipt Date: 20120613
  Transmission Date: 20120825
  Serious: Yes (Hospitalization, Other)
  Sender: FDA-Public Use
  Company Number: US-AMGEN-USASP2011063730

PATIENT
  Age: 64 Year
  Sex: Male

DRUGS (2)
  1. ENBREL [Suspect]
     Indication: PSORIASIS
     Dosage: 50 MG, QWK
     Dates: start: 20050501
  2. ENBREL [Suspect]
     Indication: PSORIATIC ARTHROPATHY
     Dosage: UNK
     Dates: start: 20050101

REACTIONS (9)
  - VASCULAR GRAFT [None]
  - INTERSTITIAL LUNG DISEASE [None]
  - ASTHENIA [None]
  - FEELING ABNORMAL [None]
  - PSORIASIS [None]
  - HYPERTENSION [None]
  - STRESS [None]
  - FATIGUE [None]
  - CARDIOVASCULAR DISORDER [None]
